FAERS Safety Report 16366734 (Version 1)
Quarter: 2019Q2

REPORT INFORMATION
  Report Type: Report from Study
  Country: US (occurrence: US)
  Receive Date: 20190529
  Receipt Date: 20190529
  Transmission Date: 20190711
  Serious: Yes (Other)
  Sender: FDA-Public Use
  Company Number: US-MYLANLABS-2019M1049966

PATIENT
  Sex: Female

DRUGS (1)
  1. BUPIVACAINE. [Suspect]
     Active Substance: BUPIVACAINE
     Indication: PROCEDURAL PAIN
     Dosage: RECEIVED AT AN INITIAL RATE OF 6 ML/H, AND WAS TITRATED TO ENSURE ADEQUATE PAIN CONTROL
     Route: 008

REACTIONS (1)
  - Embolism venous [Unknown]
